FAERS Safety Report 7090898-3 (Version None)
Quarter: 2010Q4

REPORT INFORMATION
  Report Type: 
  Country: None (occurrence: None)
  Receive Date: 20101105
  Receipt Date: 20101105
  Transmission Date: 20110411
  Serious: No
  Sender: FDA-Public Use
  Company Number: None

PATIENT
  Sex: Female
  Weight: 47.2 kg

DRUGS (7)
  1. METOCLOPRAMIDE [Suspect]
     Indication: ABDOMINAL PAIN
     Dosage: 10 MG ONE TIME IV BOLUS
     Route: 040
  2. METOCLOPRAMIDE [Suspect]
     Indication: NAUSEA
     Dosage: 10 MG ONE TIME IV BOLUS
     Route: 040
  3. IOHEXOL [Concomitant]
  4. ONDANSETRON [Concomitant]
  5. HYDROMORPHONE HCL [Concomitant]
  6. NORMAL SALINE [Concomitant]
  7. DIPHENHYDRAMINE [Concomitant]

REACTIONS (3)
  - AGITATION [None]
  - HYPERSENSITIVITY [None]
  - IRRITABILITY [None]
